FAERS Safety Report 8414150-6 (Version None)
Quarter: 2012Q2

REPORT INFORMATION
  Report Type: 
  Country: None (occurrence: None)
  Receive Date: 20120605
  Receipt Date: 20120604
  Transmission Date: 20120825
  Serious: Yes (Death, Hospitalization, Other)
  Sender: FDA-Public Use
  Company Number: US-TEVA-336841USA

PATIENT
  Sex: Female

DRUGS (11)
  1. TRIHEXYPHENIDYL [Concomitant]
     Dosage: 4 MILLIGRAM;
  2. CLOZAPINE [Suspect]
     Indication: SCHIZOAFFECTIVE DISORDER
     Route: 048
     Dates: end: 20120101
  3. VALPROATE SODIUM [Concomitant]
     Dosage: 2500 MILLIGRAM;
  4. RISPERIDONE [Concomitant]
     Dosage: 3.5714 MILLIGRAM;
     Route: 030
  5. CALCIUM [Concomitant]
  6. FEXOFENADINE [Concomitant]
     Dosage: 180 MILLIGRAM;
  7. FLUTICASONE PROPIONATE [Concomitant]
     Dosage: 50 MILLIGRAM;
  8. ACETAMINOPHEN [Concomitant]
     Dosage: 1950 MILLIGRAM;
     Route: 048
  9. M.V.I. [Concomitant]
  10. ERGOCALCIFEROL [Concomitant]
  11. OMEPRAZOLE [Concomitant]

REACTIONS (3)
  - SMALL INTESTINAL OBSTRUCTION [None]
  - ACUTE RESPIRATORY DISTRESS SYNDROME [None]
  - PNEUMONIA [None]
